FAERS Safety Report 4355059-7 (Version None)
Quarter: 2004Q2

REPORT INFORMATION
  Report Type: 
  Country: None (occurrence: None)
  Receive Date: 20040504
  Receipt Date: 20040420
  Transmission Date: 20050107
  Serious: Yes (Hospitalization, Other)
  Sender: FDA-Public Use
  Company Number: 2004003040

PATIENT
  Age: 52 Year
  Sex: Female
  Weight: 104.3273 kg

DRUGS (50)
  1. LIPITOR [Suspect]
     Indication: HYPERLIPIDAEMIA
     Dosage: 80 MG DAILY ORAL
     Route: 048
     Dates: end: 20030214
  2. GUAIFENESIN (GUAIFENESIN) [Suspect]
     Indication: COUGH
  3. ALL OTHER THERAPEUTIC PRODUCTS (ALL OTHER THERAPEUTIC PRODUCTS) [Suspect]
     Indication: ILL-DEFINED DISORDER
     Dates: start: 20030101
  4. MORPHINE SULFATE [Suspect]
     Indication: PAIN
     Dates: end: 20030101
  5. HYDROCODONE (HYDROCODONE) [Suspect]
     Indication: ILL-DEFINED DISORDER
  6. PROMETHAZINE HYDROCHLORIDE TAB [Suspect]
     Indication: ILL-DEFINED DISORDER
  7. INSULIN [Concomitant]
  8. FUROSEMIDE [Concomitant]
  9. VALSARTAN (VALSARTAN) [Concomitant]
  10. CITALOPRAM HYDROBROMIDE (CITALOPRAM HYDROBROMIDE) [Concomitant]
  11. ACETYLSALICYLIC ACID SRT [Concomitant]
  12. ESCITALOPRAM (ESCITALOPRAM) [Concomitant]
  13. OXYCOCET (PARACETAMOL OXYCODONE HYDROCHLORIDE) [Concomitant]
  14. PANTOPRAZOLE (PANTOPRAZOLE) [Concomitant]
  15. PROPOXYPHENE HCL [Concomitant]
  16. EZETIMIBE (EZETIMIBE) [Concomitant]
  17. IBUPROFEN [Concomitant]
  18. SALINE MIXTURE (SODIUM CITRATE, AMMONIUM ACETATE, SODIUM NITRATE, CAMP [Concomitant]
  19. PHENOL (PHENOL) [Concomitant]
  20. TUSSIONEX ^LABQUIFAR^ (BROMHEXINE HYDROCHLORIDE, ZIPERPROL) [Concomitant]
  21. ALPRAZOLAM [Concomitant]
  22. VANCOMYCIN [Concomitant]
  23. VICODIN [Concomitant]
  24. GABAPENTIN [Concomitant]
  25. TIAGABINE HYDROCHLORIDE (TIAGABINE HYDROCHLORIDE) [Concomitant]
  26. LINEZOLID (LINEZOLID) [Concomitant]
  27. HYDROMORPHONE HCL [Concomitant]
  28. MORPHINE SULFATE [Concomitant]
  29. NITROFURANTOIN [Concomitant]
  30. ALL OTHER THERAPEUTIC PRODUCTS [Concomitant]
  31. BACTRIM [Concomitant]
  32. TRIMETHOBENZAMIDE HYDROCHLORIDE (TRIMETHOBENZAMIDE HYDROCHLORIDE) [Concomitant]
  33. PROPACET (PARACETAMOL, DEXTROPROPXYPHENE NAPSILATE) [Concomitant]
  34. NITROGLYCERIN [Concomitant]
  35. CELECOXIB (CELECOXIB) [Concomitant]
  36. TOCOPHEROL CONCENTRATE CAP [Concomitant]
  37. HUMAN MIXTARD (INSULIN HUMAN, INSULIN HUMAN INJECTION, ISOPHANE) [Concomitant]
  38. NICOTINIC ACID [Concomitant]
  39. CYANOCOBALAMIN (CYANCOBALAMIN) [Concomitant]
  40. GARLIC (GARLIC) [Concomitant]
  41. CHOLESTEROL AND TRIGLYCERIDES REDUCERS (CHOLESTEROL AND TRIGLYCERIDE R [Concomitant]
  42. CARDIAC THERAPY (CARDIAC THERAPY) [Concomitant]
  43. ANTIBIOTICS (ANTIBIOTICS) [Concomitant]
  44. TROGLITAZONE (TROGLITAZONE) [Concomitant]
  45. ATENOLOL [Concomitant]
  46. METOPROLOL (METOPROLOL) [Concomitant]
  47. DOCUSATE SODIUM (DOCUSATE SODIUM) [Concomitant]
  48. LISINOPRIL [Concomitant]
  49. CLOPIDOGREL BISULFATE [Concomitant]
  50. ALL OTHER THERAPEUTIC PRODUCTS [Concomitant]

REACTIONS (64)
  - ACUTE MYOCARDIAL INFARCTION [None]
  - ANGINA UNSTABLE [None]
  - ANOREXIA [None]
  - ANXIETY [None]
  - ARTERIAL OCCLUSIVE DISEASE [None]
  - ARTERIAL STENOSIS LIMB [None]
  - ARTHRALGIA [None]
  - ASTHENIA [None]
  - BACK PAIN [None]
  - BLOOD GLUCOSE INCREASED [None]
  - BLOOD PRESSURE SYSTOLIC INCREASED [None]
  - BLOOD TRIGLYCERIDES INCREASED [None]
  - CARDIAC DISORDER [None]
  - CORONARY ARTERY ATHEROSCLEROSIS [None]
  - CORONARY ARTERY DISEASE [None]
  - CORONARY ARTERY OCCLUSION [None]
  - CORONARY ARTERY STENOSIS [None]
  - CORONARY ARTERY SURGERY [None]
  - CORONARY OSTIAL STENOSIS [None]
  - COUGH [None]
  - DEPRESSION [None]
  - DIABETES MELLITUS INADEQUATE CONTROL [None]
  - DIFFICULTY IN WALKING [None]
  - DILATATION ATRIAL [None]
  - DILATATION VENTRICULAR [None]
  - DIVERTICULITIS [None]
  - DYSARTHRIA [None]
  - DYSPNOEA EXERTIONAL [None]
  - EJECTION FRACTION DECREASED [None]
  - ELECTROCARDIOGRAM ST SEGMENT ELEVATION [None]
  - ELECTROCARDIOGRAM ST-T SEGMENT ABNORMAL [None]
  - FALL [None]
  - FATIGUE [None]
  - FEELING ABNORMAL [None]
  - FEMORAL ARTERIAL STENOSIS [None]
  - FOOT AMPUTATION [None]
  - GENERAL PHYSICAL HEALTH DETERIORATION [None]
  - GLYCOSYLATED HAEMOGLOBIN INCREASED [None]
  - HEADACHE [None]
  - HYPERLIPIDAEMIA [None]
  - HYPERTENSION [None]
  - INJURY [None]
  - INSOMNIA [None]
  - ISCHAEMIC CARDIOMYOPATHY [None]
  - LIVER DISORDER [None]
  - MUSCLE DISORDER [None]
  - MYOCARDIAL ISCHAEMIA [None]
  - OEDEMA PERIPHERAL [None]
  - OSTEOARTHRITIS [None]
  - OSTEOMYELITIS [None]
  - PAIN IN EXTREMITY [None]
  - PERIPHERAL OCCLUSIVE DISEASE [None]
  - POST PROCEDURAL COMPLICATION [None]
  - PULMONARY CONGESTION [None]
  - SEDATION [None]
  - SINUS TACHYCARDIA [None]
  - SOMNOLENCE [None]
  - STRESS SYMPTOMS [None]
  - SUICIDAL IDEATION [None]
  - VENTRICULAR DYSFUNCTION [None]
  - VENTRICULAR HYPERTROPHY [None]
  - VENTRICULAR HYPOKINESIA [None]
  - VOMITING [None]
  - WOUND INFECTION [None]
